FAERS Safety Report 5407430-X (Version None)
Quarter: 2007Q3

REPORT INFORMATION
  Report Type: 
  Country: None (occurrence: None)
  Receive Date: 20070807
  Receipt Date: 20070802
  Transmission Date: 20080115
  Serious: Yes (Hospitalization)
  Sender: FDA-Public Use
  Company Number: US-ASTRAZENECA-2007UW18565

PATIENT
  Age: 83 Year
  Sex: Female
  Weight: 63.5 kg

DRUGS (10)
  1. PULMICORT [Suspect]
     Indication: CHRONIC OBSTRUCTIVE PULMONARY DISEASE
     Route: 055
     Dates: end: 20070501
  2. PULMICORT [Suspect]
     Route: 055
     Dates: start: 20070501
  3. OXYGEN [Concomitant]
  4. ALPRAZOLAM [Concomitant]
  5. NORVASC [Concomitant]
  6. HYDROCHLOROTHIAZIDE [Concomitant]
  7. PROPRANOLOL [Concomitant]
  8. SYNTHROID [Concomitant]
  9. HYDROCODONE BITARTRATE [Concomitant]
  10. XOPENEX [Concomitant]

REACTIONS (2)
  - DYSPNOEA [None]
  - HOSPITALISATION [None]
